FAERS Safety Report 7911657-2 (Version None)
Quarter: 2011Q4

REPORT INFORMATION
  Report Type: 
  Country: None (occurrence: None)
  Receive Date: 20111114
  Receipt Date: 20111114
  Transmission Date: 20120403
  Serious: Yes (Other)
  Sender: FDA-Public Use
  Company Number: None

PATIENT
  Age: 35 Year
  Sex: Female
  Weight: 151.49 kg

DRUGS (1)
  1. ORAJEL TOPICAL OINTMENT [Suspect]
     Indication: TOOTH DISORDER
     Dosage: SMALL AMOUNT
     Route: 048
     Dates: start: 20110930, end: 20111001

REACTIONS (1)
  - HYPOAESTHESIA ORAL [None]
